FAERS Safety Report 8484456-3 (Version None)
Quarter: 2012Q3

REPORT INFORMATION
  Report Type: 
  Country: None (occurrence: None)
  Receive Date: 20120703
  Receipt Date: 20120628
  Transmission Date: 20120928
  Serious: Yes (Other)
  Sender: FDA-Public Use
  Company Number: PHHY2012CA055825

PATIENT
  Sex: Female

DRUGS (1)
  1. SANDOSTATIN LAR [Suspect]
     Indication: CARCINOID TUMOUR
     Dosage: 30 MG,EVERY 4 WEEKS
     Route: 025
     Dates: start: 20090914

REACTIONS (5)
  - RENAL DISORDER [None]
  - URINE ODOUR ABNORMAL [None]
  - ANGER [None]
  - RENAL PAIN [None]
  - URINE COLOUR ABNORMAL [None]
